FAERS Safety Report 6359524-2 (Version None)
Quarter: 2009Q3

REPORT INFORMATION
  Report Type: 
  Country: None (occurrence: None)
  Receive Date: 20090917
  Receipt Date: 20090909
  Transmission Date: 20100115
  Serious: Yes (Death, Hospitalization)
  Sender: FDA-Public Use
  Company Number: IT-ABBOTT-09P-083-0570667-00

PATIENT
  Sex: Female

DRUGS (3)
  1. KLACID [Suspect]
     Indication: CELLULITIS
     Route: 048
     Dates: start: 20090415, end: 20090422
  2. METRONIDAZOLO [Suspect]
     Indication: CELLULITIS
     Dosage: DAILY
     Route: 048
  3. AVELOX [Suspect]
     Indication: CELLULITIS
     Dosage: DAILY
     Route: 048
     Dates: start: 20090415, end: 20090422

REACTIONS (4)
  - ERYTHEMA [None]
  - HEPATORENAL FAILURE [None]
  - METASTASES TO BREAST [None]
  - PRURITUS GENERALISED [None]
